FAERS Safety Report 19996313 (Version 1)
Quarter: 2021Q4

REPORT INFORMATION
  Report Type: Spontaneous
  Country: US (occurrence: US)
  Receive Date: 20211026
  Receipt Date: 20211026
  Transmission Date: 20220303
  Serious: Yes (Other)
  Sender: FDA-Public Use
  Company Number: None

PATIENT
  Age: 74 Year
  Sex: Female
  Weight: 80.46 kg

DRUGS (12)
  1. METFORMIN HYDROCHLORIDE [Suspect]
     Active Substance: METFORMIN HYDROCHLORIDE
     Indication: Diabetes mellitus
     Dosage: ?          QUANTITY:60 TABLET(S);
     Route: 048
  2. METFORMIN [Concomitant]
     Active Substance: METFORMIN HYDROCHLORIDE
  3. NOVOLIN NOS [Concomitant]
     Active Substance: INSULIN HUMAN
  4. LANTUS [Concomitant]
     Active Substance: INSULIN GLARGINE
  5. LASIX [Concomitant]
     Active Substance: FUROSEMIDE
  6. TELMISARTAN [Concomitant]
     Active Substance: TELMISARTAN
  7. HYDROLAZINE [Concomitant]
  8. LEVOTHYROXINE [Concomitant]
     Active Substance: LEVOTHYROXINE
  9. EPIPEN [Concomitant]
     Active Substance: EPINEPHRINE
  10. CLARITIN [Concomitant]
     Active Substance: LORATADINE
  11. VITAMIN D [Concomitant]
     Active Substance: VITAMIN D NOS
  12. CALCIUM [Concomitant]
     Active Substance: CALCIUM

REACTIONS (11)
  - Angioedema [None]
  - Gastrointestinal disorder [None]
  - Eye movement disorder [None]
  - Brain neoplasm [None]
  - Sexual dysfunction [None]
  - Weight decreased [None]
  - Feeding disorder [None]
  - Skin disorder [None]
  - Panic attack [None]
  - Therapy interrupted [None]
  - Suspected product quality issue [None]

NARRATIVE: CASE EVENT DATE: 20211022
